FAERS Safety Report 5650546-3 (Version None)
Quarter: 2008Q1

REPORT INFORMATION
  Report Type: 
  Country: None (occurrence: None)
  Receive Date: 20080304
  Receipt Date: 20080304
  Transmission Date: 20080703
  Serious: Yes (Other)
  Sender: FDA-Public Use
  Company Number: None

PATIENT
  Age: 55 Year
  Sex: Male
  Weight: 93.8946 kg

DRUGS (2)
  1. ISENTRESS [Suspect]
     Indication: HIV INFECTION
     Dosage: 400MG BID PO
     Route: 048
     Dates: start: 20071023, end: 20080229
  2. CRESTOR [Suspect]
     Indication: DYSLIPIDAEMIA
     Dosage: 10MG QD PO
     Route: 048
     Dates: start: 20060410, end: 20080214

REACTIONS (2)
  - BLOOD CREATINE PHOSPHOKINASE INCREASED [None]
  - MYALGIA [None]
